FAERS Safety Report 17307718 (Version 1)
Quarter: 2020Q1

REPORT INFORMATION
  Report Type: Spontaneous
  Country: GB (occurrence: GB)
  Receive Date: 20200123
  Receipt Date: 20200123
  Transmission Date: 20200409
  Serious: Yes (Death, Other)
  Sender: FDA-Public Use
  Company Number: GB-MYLANLABS-2009S1000308

PATIENT
  Sex: Male
  Weight: 1.97 kg

DRUGS (1)
  1. METFORMIN [Suspect]
     Active Substance: METFORMIN HYDROCHLORIDE
     Indication: GESTATIONAL DIABETES
     Dosage: 500 MG,QD
     Route: 064
     Dates: start: 20080917, end: 20081113

REACTIONS (4)
  - Foetal growth restriction [Fatal]
  - Oesophageal atresia [Fatal]
  - Tracheo-oesophageal fistula [Fatal]
  - Exposure during pregnancy [Recovered/Resolved]
